FAERS Safety Report 19725629 (Version 2)
Quarter: 2021Q4

REPORT INFORMATION
  Report Type: Spontaneous
  Country: US (occurrence: US)
  Receive Date: 20210819
  Receipt Date: 20211014
  Transmission Date: 20220303
  Serious: Yes (Other)
  Sender: FDA-Public Use
  Company Number: US-BEAUTYAVENUES-2021-US-018011

PATIENT
  Age: 53 Year
  Sex: Female
  Weight: 69.4 kg

DRUGS (7)
  1. ALCOHOL [Suspect]
     Active Substance: ALCOHOL
     Indication: Accidental exposure to product
     Dosage: ACCIDENTAL EYE EXPOSURE
     Dates: start: 20201219, end: 20201219
  2. METFORMIN [Concomitant]
     Active Substance: METFORMIN HYDROCHLORIDE
  3. TRULICITY [Concomitant]
     Active Substance: DULAGLUTIDE
  4. UNSPECIFIED INGREDIENT [Concomitant]
     Active Substance: UNSPECIFIED INGREDIENT
  5. LISINOPRIL [Concomitant]
     Active Substance: LISINOPRIL
  6. COREG [Concomitant]
     Active Substance: CARVEDILOL
  7. FENOFIBRIC ACID [Concomitant]
     Active Substance: FENOFIBRIC ACID

REACTIONS (6)
  - Eye irritation [Not Recovered/Not Resolved]
  - Ocular hyperaemia [Not Recovered/Not Resolved]
  - Accidental exposure to product [Recovered/Resolved]
  - Corneal abrasion [Unknown]
  - Vision blurred [Recovering/Resolving]
  - Visual impairment [Recovered/Resolved]

NARRATIVE: CASE EVENT DATE: 20201201
